FAERS Safety Report 10374528 (Version 2)
Quarter: 2014Q3

REPORT INFORMATION
  Report Type: Spontaneous
  Country: AR (occurrence: AR)
  Receive Date: 20140811
  Receipt Date: 20140919
  Transmission Date: 20150326
  Serious: Yes (Other)
  Sender: FDA-Public Use
  Company Number: AR-AMGEN-ARGSP2014060186

PATIENT
  Age: 67 Year
  Sex: Female

DRUGS (1)
  1. ENBREL [Suspect]
     Active Substance: ETANERCEPT
     Indication: PSORIATIC ARTHROPATHY
     Dosage: 50 MG, WEEKLY
     Route: 065
     Dates: start: 20100701

REACTIONS (9)
  - Pain [Not Recovered/Not Resolved]
  - Accident [Unknown]
  - Arthritis [Recovering/Resolving]
  - Rib fracture [Recovered/Resolved]
  - Hypokinesia [Recovered/Resolved]
  - Abasia [Recovering/Resolving]
  - Nervousness [Recovering/Resolving]
  - Herpes zoster [Recovering/Resolving]
  - Psoriasis [Recovering/Resolving]

NARRATIVE: CASE EVENT DATE: 201402
